FAERS Safety Report 13675632 (Version 2)
Quarter: 2020Q2

REPORT INFORMATION
  Report Type: Spontaneous
  Country: FR (occurrence: FR)
  Receive Date: 20170621
  Receipt Date: 20200527
  Transmission Date: 20200713
  Serious: Yes (Hospitalization)
  Sender: FDA-Public Use
  Company Number: FR-BAUSCH-BL-2017-019643

PATIENT
  Age: 9 Year
  Sex: Female

DRUGS (15)
  1. ZOVIRAX [Suspect]
     Active Substance: ACYCLOVIR
     Indication: ANTIVIRAL PROPHYLAXIS
     Route: 065
     Dates: start: 20170506
  2. BACTRIM [Suspect]
     Active Substance: SULFAMETHOXAZOLE\TRIMETHOPRIM
     Indication: PNEUMOCYSTIS JIROVECII PNEUMONIA
     Route: 065
     Dates: start: 20170502, end: 201706
  3. CIDOFOVIR ANHYDRE [Suspect]
     Active Substance: CIDOFOVIR
     Dosage: SECOND DOSE
     Route: 065
     Dates: start: 20170518
  4. VFEND [Suspect]
     Active Substance: VORICONAZOLE
     Indication: PROPHYLAXIS
     Route: 065
     Dates: start: 20170429
  5. CICLOSPORINE [Suspect]
     Active Substance: CYCLOSPORINE
     Indication: TRANSPLANT
     Route: 048
  6. CIDOFOVIR ANHYDRE [Suspect]
     Active Substance: CIDOFOVIR
     Dosage: THIRD DOSE
     Route: 065
     Dates: start: 20170525
  7. ORACILLINE [Suspect]
     Active Substance: PENICILLIN V
     Indication: PRODUCT USED FOR UNKNOWN INDICATION
     Route: 065
     Dates: start: 20170502
  8. FLAGYL [Suspect]
     Active Substance: METRONIDAZOLE\METRONIDAZOLE HYDROCHLORIDE
     Indication: INFECTION
     Route: 065
     Dates: start: 20170524, end: 201706
  9. INEXIUM [Suspect]
     Active Substance: ESOMEPRAZOLE
     Indication: PRODUCT USED FOR UNKNOWN INDICATION
     Route: 048
     Dates: start: 20170324
  10. CORTANCYL [Suspect]
     Active Substance: PREDNISONE
     Indication: TRANSPLANT
     Route: 048
     Dates: start: 201704
  11. ARAVA [Suspect]
     Active Substance: LEFLUNOMIDE
     Indication: PRODUCT USED FOR UNKNOWN INDICATION
     Route: 048
     Dates: end: 20170531
  12. CIDOFOVIR ANHYDRE [Suspect]
     Active Substance: CIDOFOVIR
     Indication: CYTOMEGALOVIRUS INFECTION
     Dosage: FIRST DOSE
     Route: 065
     Dates: start: 20170511
  13. MABTHERA [Suspect]
     Active Substance: RITUXIMAB
     Indication: PRODUCT USED FOR UNKNOWN INDICATION
     Route: 065
     Dates: end: 201704
  14. LOXEN (NICARDIPINE HYDROCHLORIDE) [Suspect]
     Active Substance: NICARDIPINE HYDROCHLORIDE
     Indication: HYPERTENSION
     Route: 065
     Dates: start: 20170510
  15. URSOFALK [Suspect]
     Active Substance: URSODIOL
     Indication: PRODUCT USED FOR UNKNOWN INDICATION
     Route: 065
     Dates: start: 20170322

REACTIONS (1)
  - Neutropenia [Recovered/Resolved]

NARRATIVE: CASE EVENT DATE: 20170529
